FAERS Safety Report 24031806 (Version 2)
Quarter: 2024Q3

REPORT INFORMATION
  Report Type: Spontaneous
  Country: US (occurrence: US)
  Receive Date: 20240629
  Receipt Date: 20240808
  Transmission Date: 20241017
  Serious: Yes (Life-Threatening, Hospitalization, Other)
  Sender: AUROBINDO
  Company Number: US-MLMSERVICE-20240613-PI098042-00050-1

PATIENT
  Age: 28 Year
  Sex: Male

DRUGS (1)
  1. AMLODIPINE [Suspect]
     Active Substance: AMLODIPINE BESYLATE
     Indication: Product used for unknown indication
     Dosage: UNK
     Route: 048

REACTIONS (9)
  - Shock [Recovered/Resolved]
  - Hypothermia [Recovered/Resolved]
  - Depressed level of consciousness [Recovered/Resolved]
  - Hypotension [Recovered/Resolved]
  - Mental status changes [Recovered/Resolved]
  - Overdose [Recovered/Resolved]
  - Vasoplegia syndrome [Unknown]
  - Multiple organ dysfunction syndrome [Unknown]
  - Intentional overdose [Unknown]
